FAERS Safety Report 9411256 (Version 1)
Quarter: 2013Q3

REPORT INFORMATION
  Report Type: Spontaneous
  Country: US (occurrence: US)
  Receive Date: 20130722
  Receipt Date: 20130722
  Transmission Date: 20140515
  Serious: No
  Sender: FDA-Public Use
  Company Number: US-B.I. PHARMACEUTICALS,INC./RIDGEFIELD-2013-BI-21013BP

PATIENT
  Age: 73 Year
  Sex: Female
  Weight: 67 kg

DRUGS (13)
  1. TRADJENTA [Suspect]
     Indication: DIABETES MELLITUS MANAGEMENT
     Dosage: 5 MG
     Route: 048
     Dates: start: 20130625
  2. GLYBURIDE [Concomitant]
     Indication: DIABETES MELLITUS
     Dosage: 8 MG
     Route: 048
     Dates: start: 1983
  3. HYDROCHLOROTHIAZIDE [Concomitant]
     Indication: HYPERTENSION
     Dosage: 25 MG
     Route: 048
     Dates: start: 1983
  4. LISINOPRIL [Concomitant]
     Indication: HYPERTENSION
     Dosage: 40 MG
     Route: 048
     Dates: start: 1983
  5. VERAPAMIL [Concomitant]
     Indication: HYPERTENSION
     Dosage: 240 MG
     Route: 048
     Dates: start: 1983
  6. PRAVASTATIN [Concomitant]
     Indication: BLOOD CHOLESTEROL INCREASED
     Dosage: 40 MG
     Route: 048
     Dates: start: 1999
  7. BROMOCRIPTINE [Concomitant]
     Indication: PITUITARY TUMOUR
     Dosage: 2.5 MG
     Route: 048
     Dates: start: 1993
  8. RANITIDINE [Concomitant]
     Indication: GASTROOESOPHAGEAL REFLUX DISEASE
     Dosage: 150 MG
     Route: 048
     Dates: start: 1983
  9. ASPIRIN [Concomitant]
     Indication: SUPPLEMENTATION THERAPY
     Dosage: 81 MG
     Route: 048
     Dates: start: 2003
  10. FISH OIL [Concomitant]
     Indication: SUPPLEMENTATION THERAPY
     Dosage: 1 ANZ
     Route: 048
     Dates: start: 2003
  11. VITAMIN B [Concomitant]
     Indication: VITAMIN SUPPLEMENTATION
     Dosage: 1 ANZ
     Route: 048
     Dates: start: 2003
  12. PROACTIVE ACIDOPHILUS [Concomitant]
     Indication: SUPPLEMENTATION THERAPY
     Dosage: 1 ANZ
     Route: 048
     Dates: start: 2003
  13. MULTIVITAMIN [Concomitant]
     Indication: VITAMIN SUPPLEMENTATION
     Dosage: 1 ANZ
     Route: 048
     Dates: start: 2003

REACTIONS (2)
  - Blood glucose increased [Not Recovered/Not Resolved]
  - Constipation [Not Recovered/Not Resolved]
